FAERS Safety Report 24926276 (Version 1)
Quarter: 2025Q1

REPORT INFORMATION
  Report Type: Spontaneous
  Country: FR (occurrence: FR)
  Receive Date: 20250205
  Receipt Date: 20250205
  Transmission Date: 20250409
  Serious: Yes (Other)
  Sender: ROCHE
  Company Number: FR-ROCHE-3558313

PATIENT
  Age: 3 Year
  Sex: Female
  Weight: 12.3 kg

DRUGS (23)
  1. BACTRIM [Suspect]
     Active Substance: SULFAMETHOXAZOLE\TRIMETHOPRIM
     Indication: Antibiotic prophylaxis
     Route: 065
     Dates: start: 20240322, end: 202404
  2. VALGANCICLOVIR HYDROCHLORIDE [Suspect]
     Active Substance: VALGANCICLOVIR HYDROCHLORIDE
     Indication: Antibiotic prophylaxis
     Route: 065
     Dates: start: 20240322, end: 202404
  3. HEPARIN [Suspect]
     Active Substance: HEPARIN SODIUM
     Indication: Anticoagulant therapy
     Dosage: 4 UI/KG/H
     Route: 065
     Dates: start: 20240324, end: 202404
  4. DEXMEDETOMIDINE HYDROCHLORIDE [Suspect]
     Active Substance: DEXMEDETOMIDINE HYDROCHLORIDE
     Indication: Sedation
     Dosage: 1UG/KG/H
     Route: 065
     Dates: start: 20240318, end: 20240401
  5. DEXMEDETOMIDINE HYDROCHLORIDE [Suspect]
     Active Substance: DEXMEDETOMIDINE HYDROCHLORIDE
     Route: 065
     Dates: start: 20240324
  6. DEXMEDETOMIDINE HYDROCHLORIDE [Suspect]
     Active Substance: DEXMEDETOMIDINE HYDROCHLORIDE
     Route: 065
     Dates: end: 20240401
  7. FUROSEMIDE [Suspect]
     Active Substance: FUROSEMIDE
     Indication: Diuretic therapy
     Dosage: 2MG/KG/24H
     Route: 065
     Dates: start: 20240325, end: 202404
  8. KETAMINE [Suspect]
     Active Substance: KETAMINE
     Indication: Sedation
     Dosage: 1MG/KG/24H
     Route: 065
     Dates: start: 20240322, end: 20240402
  9. KETAMINE [Suspect]
     Active Substance: KETAMINE
     Route: 065
     Dates: start: 20240324
  10. KETAMINE [Suspect]
     Active Substance: KETAMINE
     Route: 065
     Dates: start: 20240331
  11. KETAMINE [Suspect]
     Active Substance: KETAMINE
     Route: 065
     Dates: end: 20240402
  12. RITUXIMAB [Concomitant]
     Active Substance: RITUXIMAB
     Route: 065
  13. ALFACALCIDOL [Concomitant]
     Active Substance: ALFACALCIDOL
  14. PREDNISONE [Concomitant]
     Active Substance: PREDNISONE
  15. TACROLIMUS [Concomitant]
     Active Substance: TACROLIMUS
  16. BICARBONATE OF SODA [Concomitant]
  17. AMLODIPINE [Concomitant]
     Active Substance: AMLODIPINE BESYLATE
  18. ALBUTEROL [Concomitant]
     Active Substance: ALBUTEROL
  19. ESOMEPRAZOLE [Concomitant]
     Active Substance: ESOMEPRAZOLE
  20. SECTRAL [Concomitant]
     Active Substance: ACEBUTOLOL HYDROCHLORIDE
  21. TACROLIMUS [Concomitant]
     Active Substance: TACROLIMUS
  22. FUROSEMIDE [Concomitant]
     Active Substance: FUROSEMIDE
  23. PROPOFOL [Concomitant]
     Active Substance: PROPOFOL

REACTIONS (2)
  - Cholestasis [Recovering/Resolving]
  - Off label use [Unknown]

NARRATIVE: CASE EVENT DATE: 20240326
